APPROVED DRUG PRODUCT: MIRTAZAPINE
Active Ingredient: MIRTAZAPINE
Strength: 30MG
Dosage Form/Route: TABLET, ORALLY DISINTEGRATING;ORAL
Application: A077376 | Product #003 | TE Code: AB
Applicant: AUROBINDO PHARMA LTD
Approved: Dec 8, 2005 | RLD: No | RS: No | Type: RX